FAERS Safety Report 5755685-4 (Version None)
Quarter: 2008Q2

REPORT INFORMATION
  Report Type: 
  Country: None (occurrence: None)
  Receive Date: 20080528
  Receipt Date: 20080522
  Transmission Date: 20081010
  Serious: Yes (Death)
  Sender: FDA-Public Use
  Company Number: 2008SP009837

PATIENT
  Age: 39 Year
  Sex: Male

DRUGS (1)
  1. PEG-INTRON [Suspect]
     Indication: HEPATITIS C
     Dosage: 100 MCG; QW; IM
     Route: 030
     Dates: start: 20080424, end: 20080508

REACTIONS (5)
  - ASTHENIA [None]
  - DIPLOPIA [None]
  - HAEMODIALYSIS [None]
  - HYPOTENSION [None]
  - RHABDOMYOLYSIS [None]
